FAERS Safety Report 13967019 (Version 1)
Quarter: 2017Q3

REPORT INFORMATION
  Report Type: Spontaneous
  Country: US (occurrence: None)
  Receive Date: 20170912
  Receipt Date: 20170912
  Transmission Date: 20171128
  Serious: No
  Sender: FDA-Public Use
  Company Number: None

PATIENT
  Age: 66 Year
  Sex: Male
  Weight: 103.6 kg

DRUGS (1)
  1. EMPAGLIFLOZIN [Suspect]
     Active Substance: EMPAGLIFLOZIN
     Indication: DIABETES MELLITUS
     Route: 048
     Dates: start: 20170117, end: 20170407

REACTIONS (5)
  - Genital infection fungal [None]
  - Genital burning sensation [None]
  - Disease recurrence [None]
  - Pruritus genital [None]
  - Penis disorder [None]

NARRATIVE: CASE EVENT DATE: 20170407
